FAERS Safety Report 4399244-7 (Version None)
Quarter: 2004Q3

REPORT INFORMATION
  Report Type: 
  Country: None (occurrence: None)
  Receive Date: 20040712
  Receipt Date: 20040624
  Transmission Date: 20050211
  Serious: Yes (Hospitalization)
  Sender: FDA-Public Use
  Company Number: 200431

PATIENT
  Age: 47 Year
  Sex: Female
  Weight: 90.7194 kg

DRUGS (3)
  1. AVONEX [Suspect]
     Indication: MULTIPLE SCLEROSIS
     Dosage: 30 MCG QW IM
     Route: 030
     Dates: start: 19990101, end: 20030101
  2. AVONEX [Suspect]
     Indication: MULTIPLE SCLEROSIS
     Dosage: 30 MCG QW IM
     Route: 030
     Dates: start: 20030101
  3. LEXAPRO [Concomitant]

REACTIONS (6)
  - BLADDER DISORDER [None]
  - BLOOD PRESSURE INCREASED [None]
  - BREAST RECONSTRUCTION [None]
  - DIABETES MELLITUS NON-INSULIN-DEPENDENT [None]
  - FORMICATION [None]
  - INFLUENZA LIKE ILLNESS [None]
